FAERS Safety Report 9034282 (Version 1)
Quarter: 2013Q1

REPORT INFORMATION
  Report Type: Spontaneous
  Country: IE (occurrence: IE)
  Receive Date: 20130128
  Receipt Date: 20130128
  Transmission Date: 20140127
  Serious: Yes (Death)
  Sender: FDA-Public Use
  Company Number: IE-AMGEN-IRLSP2012006874

PATIENT
  Age: 61 Year
  Sex: Male

DRUGS (1)
  1. NEULASTA [Suspect]
     Indication: SQUAMOUS CELL CARCINOMA
     Dosage: 6 MG, 3 TIMES/WK
     Route: 058
     Dates: start: 20120112

REACTIONS (1)
  - Death [Fatal]
